FAERS Safety Report 9785998 (Version 2)
Quarter: 2014Q1

REPORT INFORMATION
  Report Type: Spontaneous
  Country: US (occurrence: US)
  Receive Date: 20131227
  Receipt Date: 20140303
  Transmission Date: 20141002
  Serious: Yes (Other)
  Sender: FDA-Public Use
  Company Number: US-PFIZER INC-2013368007

PATIENT
  Age: 71 Year
  Sex: Female
  Weight: 67.12 kg

DRUGS (8)
  1. EFFEXOR XR [Suspect]
     Indication: HOT FLUSH
     Dosage: 37.5 MG, 1X/DAY
     Route: 048
     Dates: start: 20131106, end: 201311
  2. EFFEXOR XR [Suspect]
     Dosage: 75 MG, 1X/DAY
     Route: 048
     Dates: start: 201311, end: 20131217
  3. EFFEXOR XR [Suspect]
     Dosage: 150 MG, 1X/DAY
     Route: 048
     Dates: start: 20131217, end: 20131219
  4. CLONIDINE [Concomitant]
     Dosage: 1 MG, 1X/DAY
  5. DIOVAN HCT [Concomitant]
     Dosage: UNK
  6. SYNTHROID [Concomitant]
     Dosage: UNK
  7. WELLBUTRIN [Concomitant]
     Dosage: UNK
  8. GLIPIZIDE [Concomitant]
     Dosage: UNK

REACTIONS (8)
  - Palpitations [Recovered/Resolved]
  - Tachycardia [Recovered/Resolved]
  - Hepatic enzyme increased [Unknown]
  - Hyperhidrosis [Recovered/Resolved]
  - Nausea [Recovered/Resolved]
  - Asthenia [Unknown]
  - Off label use [Unknown]
  - Drug ineffective for unapproved indication [Unknown]
